FAERS Safety Report 11569036 (Version 1)
Quarter: 2015Q3

REPORT INFORMATION
  Report Type: Spontaneous
  Country: US (occurrence: US)
  Receive Date: 20150929
  Receipt Date: 20150929
  Transmission Date: 20151125
  Serious: No
  Sender: FDA-Public Use
  Company Number: US-ASTRAZENECA-2015SE91072

PATIENT
  Age: 18380 Day
  Sex: Female
  Weight: 64 kg

DRUGS (5)
  1. SYMBICORT [Suspect]
     Active Substance: BUDESONIDE\FORMOTEROL FUMARATE DIHYDRATE
     Indication: DYSPNOEA
     Dosage: 160/ 4.5 MCG TWO TIMES A DAY
     Route: 055
     Dates: start: 20150911, end: 20150912
  2. TRAZODONE [Concomitant]
     Active Substance: TRAZODONE HYDROCHLORIDE
     Indication: MENOPAUSAL SYMPTOMS
  3. WELLBUTRIN [Concomitant]
     Active Substance: BUPROPION HYDROCHLORIDE
     Indication: MENOPAUSAL SYMPTOMS
     Dates: start: 2013
  4. SYMBICORT [Suspect]
     Active Substance: BUDESONIDE\FORMOTEROL FUMARATE DIHYDRATE
     Indication: LUNG DISORDER
     Dosage: 160/ 4.5 MCG TWO TIMES A DAY
     Route: 055
     Dates: start: 20150911, end: 20150912
  5. SYMBICORT [Suspect]
     Active Substance: BUDESONIDE\FORMOTEROL FUMARATE DIHYDRATE
     Indication: BRONCHIAL DISORDER
     Dosage: 160/ 4.5 MCG TWO TIMES A DAY
     Route: 055
     Dates: start: 20150911, end: 20150912

REACTIONS (5)
  - Paraesthesia oral [Unknown]
  - Chills [Recovered/Resolved]
  - Blister [Unknown]
  - Skin mass [Unknown]
  - Rash [Recovering/Resolving]

NARRATIVE: CASE EVENT DATE: 20150911
